FAERS Safety Report 13472831 (Version 1)
Quarter: 2017Q2

REPORT INFORMATION
  Report Type: Spontaneous
  Country: US (occurrence: US)
  Receive Date: 20170424
  Receipt Date: 20170424
  Transmission Date: 20170830
  Serious: Yes (Other)
  Sender: FDA-Public Use
  Company Number: None

PATIENT
  Age: 79 Year
  Sex: Female
  Weight: 55.35 kg

DRUGS (13)
  1. METROPOLOL [Concomitant]
     Active Substance: METOPROLOL
  2. SIMVASTATIN. [Concomitant]
     Active Substance: SIMVASTATIN
  3. CALCIUM [Concomitant]
     Active Substance: CALCIUM
  4. CENTRUM MULTI-VITAMIN [Concomitant]
  5. PRESERVISION [Concomitant]
     Active Substance: MINERALS\VITAMINS
  6. BACTRIM [Concomitant]
     Active Substance: SULFAMETHOXAZOLE\TRIMETHOPRIM
  7. METHOTREXATE. [Concomitant]
     Active Substance: METHOTREXATE
  8. MONOPRIL [Concomitant]
     Active Substance: FOSINOPRIL SODIUM
  9. CO-Q10 [Concomitant]
  10. XARELTO [Suspect]
     Active Substance: RIVAROXABAN
     Indication: ATRIAL FIBRILLATION
     Dosage: ?          QUANTITY:1 TABLET(S); DAILY ORAL?
     Route: 048
  11. PREDNISONE. [Concomitant]
     Active Substance: PREDNISONE
  12. FOLIC ACID. [Concomitant]
     Active Substance: FOLIC ACID
  13. VITAMIN K2 [Concomitant]
     Active Substance: MENAQUINONE 6

REACTIONS (4)
  - Nerve injury [None]
  - Herpes zoster [None]
  - Condition aggravated [None]
  - Pruritus generalised [None]

NARRATIVE: CASE EVENT DATE: 20170417
